FAERS Safety Report 13030449 (Version 1)
Quarter: 2016Q4

REPORT INFORMATION
  Report Type: Spontaneous
  Country: US (occurrence: US)
  Receive Date: 20161215
  Receipt Date: 20161215
  Transmission Date: 20170207
  Serious: Yes (Disabling, Other)
  Sender: FDA-Public Use
  Company Number: None

PATIENT
  Age: 31 Year
  Sex: Female

DRUGS (1)
  1. CIPROFLOXACIN. [Suspect]
     Active Substance: CIPROFLOXACIN
     Indication: DIVERTICULUM
     Dosage: ?          QUANTITY:14 TABLET(S);?
     Route: 048
     Dates: start: 20150711, end: 20160712

REACTIONS (13)
  - Discomfort [None]
  - Arthralgia [None]
  - Muscular weakness [None]
  - Restless legs syndrome [None]
  - Dysstasia [None]
  - Feeling hot [None]
  - Activities of daily living impaired [None]
  - Paraesthesia [None]
  - Gait disturbance [None]
  - Mobility decreased [None]
  - Muscle spasms [None]
  - Tendon pain [None]
  - Joint crepitation [None]

NARRATIVE: CASE EVENT DATE: 20150711
